FAERS Safety Report 7249758-7 (Version None)
Quarter: 2011Q1

REPORT INFORMATION
  Report Type: 
  Country: None (occurrence: None)
  Receive Date: 20110128
  Receipt Date: 20100204
  Transmission Date: 20110831
  Serious: Yes (Other)
  Sender: FDA-Public Use
  Company Number: A0843481A

PATIENT
  Age: 35 Year
  Sex: Female

DRUGS (2)
  1. AVONEX [Concomitant]
     Indication: MULTIPLE SCLEROSIS
     Dosage: 30MCG WEEKLY
     Route: 030
     Dates: start: 20070922
  2. WELLBUTRIN [Suspect]
     Route: 048
     Dates: end: 20100101

REACTIONS (1)
  - CONVULSION [None]
